FAERS Safety Report 4714592-6 (Version None)
Quarter: 2005Q3

REPORT INFORMATION
  Report Type: 
  Country: None (occurrence: None)
  Receive Date: 20050714
  Receipt Date: 20050714
  Transmission Date: 20060218
  Serious: Yes (Hospitalization)
  Sender: FDA-Public Use
  Company Number: None

PATIENT
  Age: 60 Year
  Sex: Female

DRUGS (1)
  1. AMIODARONE; CORDARONE; WYETH-AYERST; ANTIARRHYTHMICS; [Suspect]
     Indication: ARRHYTHMIA
     Dosage: ORAL; 200.0 MILLIGRAM
     Route: 048
     Dates: start: 20020712, end: 20041101

REACTIONS (8)
  - ANXIETY [None]
  - FATIGUE [None]
  - HYPERTHYROIDISM [None]
  - INSOMNIA [None]
  - TEMPERATURE INTOLERANCE [None]
  - TREMOR [None]
  - VENTRICULAR TACHYCARDIA [None]
  - WEIGHT DECREASED [None]
